FAERS Safety Report 25874528 (Version 1)
Quarter: 2025Q4

REPORT INFORMATION
  Report Type: Spontaneous
  Country: US (occurrence: US)
  Receive Date: 20251002
  Receipt Date: 20251002
  Transmission Date: 20260118
  Serious: Yes (Other)
  Sender: PFIZER
  Company Number: US-PFIZER INC-202500194944

PATIENT
  Age: 46 Year
  Sex: Female
  Weight: 143 kg

DRUGS (2)
  1. PROPOFOL [Suspect]
     Active Substance: PROPOFOL
     Indication: Therapeutic procedure
     Dosage: 20 ML
     Route: 042
     Dates: start: 20250917
  2. ANCEF [Suspect]
     Active Substance: CEFAZOLIN SODIUM
     Indication: Genital infection female
     Dosage: 3 G

REACTIONS (2)
  - Drug hypersensitivity [Recovered/Resolved]
  - Blood pressure decreased [Recovered/Resolved]

NARRATIVE: CASE EVENT DATE: 20250917
